FAERS Safety Report 9400485 (Version 1)
Quarter: 2013Q3

REPORT INFORMATION
  Report Type: Spontaneous
  Country: IN (occurrence: None)
  Receive Date: 20130711
  Receipt Date: 20130711
  Transmission Date: 20140515
  Serious: Yes (Other)
  Sender: FDA-Public Use
  Company Number: 2013P1011215

PATIENT
  Age: 27 Year
  Sex: Female

DRUGS (3)
  1. EPHEDRINE [Suspect]
     Indication: PROCEDURAL HYPOTENSION
     Route: 042
  2. EPHEDRINE [Suspect]
     Indication: CAESAREAN SECTION
     Route: 042
  3. BUPIVACAINE [Concomitant]

REACTIONS (10)
  - Tachycardia [None]
  - Hypertension [None]
  - Therapeutic response increased [None]
  - Headache [None]
  - Vomiting [None]
  - Vision blurred [None]
  - Grand mal convulsion [None]
  - Brain oedema [None]
  - Pre-eclampsia [None]
  - Post procedural complication [None]
